FAERS Safety Report 23327196 (Version 1)
Quarter: 2023Q4

REPORT INFORMATION
  Report Type: Spontaneous
  Country: US (occurrence: US)
  Receive Date: 20231221
  Receipt Date: 20231221
  Transmission Date: 20240110
  Serious: Yes (Death, Hospitalization)
  Sender: FDA-Public Use
  Company Number: US-PFIZER INC-202300448523

PATIENT
  Age: 93 Year
  Sex: Male
  Weight: 65.77 kg

DRUGS (1)
  1. VYNDAMAX [Suspect]
     Active Substance: TAFAMIDIS
     Dosage: 61MG EVERY DAY BY MOUTH
     Route: 048

REACTIONS (3)
  - Intestinal haemorrhage [Fatal]
  - Pancreatic mass [Fatal]
  - Urinary tract infection [Fatal]
